FAERS Safety Report 6768602-5 (Version None)
Quarter: 2010Q2

REPORT INFORMATION
  Report Type: 
  Country: None (occurrence: None)
  Receive Date: 20100614
  Receipt Date: 20100604
  Transmission Date: 20101027
  Serious: Yes (Hospitalization)
  Sender: FDA-Public Use
  Company Number: US-ABBOTT-10P-163-0649503-00

PATIENT
  Sex: Male
  Weight: 140.74 kg

DRUGS (5)
  1. HUMIRA [Suspect]
     Indication: PSORIASIS
     Dates: start: 20070101
  2. WARFARIN [Concomitant]
     Indication: ATRIAL FIBRILLATION
  3. SOTALOL HCL [Concomitant]
     Indication: ATRIAL FIBRILLATION
  4. LOTREL [Concomitant]
     Indication: HYPERTENSION
  5. METFORMIN HCL [Concomitant]
     Indication: DIABETES MELLITUS

REACTIONS (3)
  - BLOOD MAGNESIUM DECREASED [None]
  - PALPITATIONS [None]
  - PSORIASIS [None]
